FAERS Safety Report 7108857-0 (Version None)
Quarter: 2010Q4

REPORT INFORMATION
  Report Type: 
  Country: None (occurrence: None)
  Receive Date: 20101104
  Receipt Date: 20101028
  Transmission Date: 20110411
  Serious: Yes (Hospitalization)
  Sender: FDA-Public Use
  Company Number: 2010SP057240

PATIENT
  Age: 41 Year
  Sex: Female

DRUGS (4)
  1. TEMODAL [Suspect]
     Indication: GLIOMA
     Dosage: 300 MG; QD; IV
     Route: 042
     Dates: start: 20090626, end: 20100810
  2. BICNU [Suspect]
     Indication: GLIOMA
     Dosage: 200 MG; UNK; IV
     Route: 042
     Dates: start: 20090911, end: 20100810
  3. OROKEN (CEFIXIME) [Suspect]
     Indication: URINARY TRACT INFECTION
     Dosage: 200 MG; BID; PO
     Route: 048
     Dates: start: 20100918, end: 20100927
  4. AUGMENTIN '125' [Suspect]
     Indication: URINARY TRACT INFECTION
     Dosage: 1 DF; QD; PO
     Route: 048
     Dates: start: 20100901, end: 20100918

REACTIONS (2)
  - HAEMOLYTIC ANAEMIA [None]
  - URINARY TRACT INFECTION [None]
